FAERS Safety Report 15312435 (Version 1)
Quarter: 2018Q3

REPORT INFORMATION
  Report Type: Spontaneous
  Country: US (occurrence: US)
  Receive Date: 20180823
  Receipt Date: 20180823
  Transmission Date: 20181010
  Serious: No
  Sender: FDA-Public Use
  Company Number: US-BAYER-2018-153586

PATIENT
  Sex: Female

DRUGS (1)
  1. ZEGERID OTC CAPSULES [Suspect]
     Active Substance: OMEPRAZOLE\SODIUM BICARBONATE
     Dosage: 2 DF, UNK (WITH FOOD DOSE)
     Route: 048

REACTIONS (4)
  - Incorrect dosage administered [Unknown]
  - Nausea [Unknown]
  - Dysgeusia [Unknown]
  - Wrong technique in product usage process [Unknown]
